FAERS Safety Report 8993076 (Version 1)
Quarter: 2013Q1

REPORT INFORMATION
  Report Type: Spontaneous
  Country: GB (occurrence: GB)
  Receive Date: 20130102
  Receipt Date: 20130102
  Transmission Date: 20140127
  Serious: Yes (Other)
  Sender: FDA-Public Use
  Company Number: GB-ASTRAZENECA-2012SE95454

PATIENT
  Age: 18627 Day
  Sex: Male
  Weight: 73 kg

DRUGS (2)
  1. LIGNOCAINE WITH ADRENALINE [Suspect]
     Indication: TOOTH EXTRACTION
     Dosage: 2%, 2.2 ML, UNKNOWN
     Route: 051
     Dates: start: 20090408, end: 20090408
  2. LIGNOCAINE WITH ADRENALINE [Suspect]
     Indication: TOOTH EXTRACTION
     Dosage: 2%, 2.2 ML, UNKNOWN
     Route: 051

REACTIONS (8)
  - Dental discomfort [Not Recovered/Not Resolved]
  - Headache [Not Recovered/Not Resolved]
  - Headache [Not Recovered/Not Resolved]
  - Dysphagia [Not Recovered/Not Resolved]
  - Tongue disorder [Not Recovered/Not Resolved]
  - Toothache [Not Recovered/Not Resolved]
  - Nerve injury [Not Recovered/Not Resolved]
  - Hypoaesthesia oral [Not Recovered/Not Resolved]
